FAERS Safety Report 8451982-2 (Version None)
Quarter: 2012Q2

REPORT INFORMATION
  Report Type: 
  Country: None (occurrence: None)
  Receive Date: 20120620
  Receipt Date: 20120411
  Transmission Date: 20120825
  Serious: No
  Sender: FDA-Public Use
  Company Number: US-VERTEX PHARMACEUTICALS INC.-AE-2012-004460

PATIENT
  Sex: Female
  Weight: 90.8 kg

DRUGS (11)
  1. FORMOTEROL FUMARATE [Concomitant]
  2. RIBAVIRIN [Concomitant]
     Indication: HEPATITIS C
     Dates: start: 20120203, end: 20120316
  3. IPRATROPIUM BROMIDE [Concomitant]
  4. CODEINE PHOSPHATE AND ACETAMINOPHEN [Concomitant]
  5. ALBUTEROL [Concomitant]
  6. PEGASYS [Concomitant]
     Indication: HEPATITIS C
     Route: 058
     Dates: start: 20120203, end: 20120316
  7. MONTELUKAST [Concomitant]
  8. INCIVEK [Suspect]
     Indication: HEPATITIS C
     Route: 048
     Dates: start: 20120203, end: 20120316
  9. BECLOMETHASONE DIPROPIONATE [Concomitant]
  10. HYDROXYZINE HCL [Concomitant]
  11. SERTRALINE HYDROCHLORIDE [Concomitant]

REACTIONS (4)
  - ORAL MUCOSAL ERYTHEMA [None]
  - ANORECTAL DISORDER [None]
  - URTICARIA PAPULAR [None]
  - PRURITUS [None]
